FAERS Safety Report 8445618-4 (Version None)
Quarter: 2012Q2

REPORT INFORMATION
  Report Type: 
  Country: None (occurrence: None)
  Receive Date: 20120618
  Receipt Date: 20120320
  Transmission Date: 20120825
  Serious: No
  Sender: FDA-Public Use
  Company Number: US-MYLANLABS-2012S1006291

PATIENT
  Age: 72 Year
  Sex: Female

DRUGS (1)
  1. NIFEDIPINE [Suspect]
     Route: 048
     Dates: start: 20120301

REACTIONS (2)
  - HYPERSENSITIVITY [None]
  - REACTION TO DRUG EXCIPIENTS [None]
